FAERS Safety Report 11338153 (Version 2)
Quarter: 2015Q3

REPORT INFORMATION
  Report Type: Spontaneous
  Country: US (occurrence: US)
  Receive Date: 20150803
  Receipt Date: 20150831
  Transmission Date: 20151125
  Serious: No
  Sender: FDA-Public Use
  Company Number: US-ELI_LILLY_AND_COMPANY-US201007003829

PATIENT
  Age: 81 Year
  Sex: Female

DRUGS (2)
  1. CYMBALTA [Suspect]
     Active Substance: DULOXETINE HYDROCHLORIDE
     Dates: start: 200805, end: 200806
  2. ZYPREXA [Suspect]
     Active Substance: OLANZAPINE
     Dates: start: 200806, end: 200806

REACTIONS (5)
  - Constipation [Unknown]
  - Limb discomfort [Unknown]
  - Feeling jittery [Unknown]
  - Nausea [Unknown]
  - Thinking abnormal [Unknown]
